FAERS Safety Report 22015007 (Version 1)
Quarter: 2023Q1

REPORT INFORMATION
  Report Type: Spontaneous
  Country: US (occurrence: US)
  Receive Date: 20230221
  Receipt Date: 20230221
  Transmission Date: 20230418
  Serious: No
  Sender: FDA-Public Use
  Company Number: US-SA-SAC20230217000395

PATIENT
  Age: 67 Year
  Sex: Male
  Weight: 138.7 kg

DRUGS (1)
  1. DUPIXENT [Suspect]
     Active Substance: DUPILUMAB
     Dosage: 300 MG, QOW
     Route: 058
     Dates: start: 20230124, end: 20230206

REACTIONS (2)
  - Injection site rash [Unknown]
  - Injection site urticaria [Unknown]
